FAERS Safety Report 7818341 (Version 2)
Quarter: 2013Q2

REPORT INFORMATION
  Report Type: Report from Study
  Country: JP (occurrence: JP)
  Receive Date: 20110218
  Receipt Date: 20130419
  Transmission Date: 20140414
  Serious: Yes (Death, Life-Threatening, Hospitalization)
  Sender: FDA-Public Use
  Company Number: JP-GENZYME-THYM-1002301

PATIENT
  Age: 47 Year
  Sex: Female
  Weight: 57 kg

DRUGS (28)
  1. THYMOGLOBULIN [Suspect]
     Indication: BONE MARROW CONDITIONING REGIMEN
     Dosage: 56 MG, QD
     Route: 042
     Dates: start: 20100517, end: 20100518
  2. IRSOGLADINE MALEATE [Concomitant]
     Indication: PROPHYLAXIS AGAINST GASTROINTESTINAL ULCER
     Dosage: 2 DF, QD
     Route: 065
     Dates: start: 20100517, end: 20100528
  3. ANTIBIOTICS-RESISTANT LACTIC ACID BACTERIAE [Concomitant]
     Indication: PROPHYLAXIS
     Dosage: 3 G, QD
     Route: 065
     Dates: start: 20100517, end: 20100528
  4. VORICONAZOLE [Concomitant]
     Indication: ANTIFUNGAL PROPHYLAXIS
     Dosage: 12 DF, QD
     Route: 065
     Dates: start: 20100518, end: 20100518
  5. VORICONAZOLE [Concomitant]
     Indication: ANTIFUNGAL PROPHYLAXIS
     Dosage: 6 DF, QD
     Route: 065
     Dates: start: 20100519, end: 20100528
  6. MAGNESIUM OXIDE [Concomitant]
     Indication: PROPHYLAXIS
     Dosage: 3 DF, QD
     Route: 065
     Dates: start: 20100519, end: 20100526
  7. MAGNESIUM OXIDE [Concomitant]
     Indication: PROPHYLAXIS
     Dosage: 3 DF, QD
     Route: 065
     Dates: start: 20100528, end: 20100528
  8. LANSOPRAZOLE [Concomitant]
     Indication: PROPHYLAXIS AGAINST GASTROINTESTINAL ULCER
     Dosage: 1 DF, QD
     Route: 065
     Dates: start: 20100517, end: 20100528
  9. ACICLOVIR [Concomitant]
     Indication: ANTIVIRAL PROPHYLAXIS
     Dosage: 5 DF, UNK
     Route: 065
     Dates: start: 20100517, end: 20100528
  10. URSODEOXYCHOLIC ACID [Concomitant]
     Indication: VENOOCCLUSIVE LIVER DISEASE
     Dosage: 6 DF, QD
     Route: 065
     Dates: start: 20100517, end: 20100528
  11. PHENYTOIN [Concomitant]
     Indication: CONVULSION PROPHYLAXIS
     Dosage: 3 DF, QD
     Route: 065
     Dates: start: 20100517, end: 20100517
  12. LEVOFLOXACIN [Concomitant]
     Indication: ANTIBIOTIC PROPHYLAXIS
     Dosage: 2 DF, QD
     Route: 065
     Dates: start: 20100517, end: 20100528
  13. FLUNITRAZEPAM [Concomitant]
     Indication: INSOMNIA
     Dosage: 1 DF, QD
     Route: 065
     Dates: start: 20100517, end: 20100528
  14. GRANISETRON HYDROCHLORIDE [Concomitant]
     Indication: PROPHYLAXIS OF NAUSEA AND VOMITING
     Dosage: 3 MG, QD
     Route: 065
     Dates: start: 20100528, end: 20100528
  15. MITOXANTRONE HYDROCHLORIDE [Concomitant]
     Indication: ACUTE MYELOID LEUKAEMIA
     Dosage: 6 MG, QD
     Route: 065
     Dates: start: 20100528, end: 20100528
  16. METHYLPREDNISOLONE SODIUM SUCCINATE [Concomitant]
     Indication: PREMEDICATION
     Dosage: 125 MG, QD
     Route: 065
     Dates: start: 20100517, end: 20100518
  17. METHYLPREDNISOLONE SODIUM SUCCINATE [Concomitant]
     Indication: PREMEDICATION
     Dosage: 500 MG, QD
     Route: 065
     Dates: start: 20100518, end: 20100518
  18. METHYLPREDNISOLONE SODIUM SUCCINATE [Concomitant]
     Indication: PROPHYLAXIS AGAINST GRAFT VERSUS HOST DISEASE
     Dosage: 60 MG, QD
     Route: 065
     Dates: start: 20100519, end: 20100528
  19. TACROLIMUS [Concomitant]
     Indication: PROPHYLAXIS AGAINST GRAFT VERSUS HOST DISEASE
     Dosage: 1.13 MG, QD
     Route: 065
     Dates: start: 20100517, end: 20100519
  20. TACROLIMUS [Concomitant]
     Indication: PROPHYLAXIS AGAINST GRAFT VERSUS HOST DISEASE
     Dosage: 1.35 MG, QD
     Route: 065
     Dates: start: 20100520, end: 20100521
  21. TACROLIMUS [Concomitant]
     Indication: PROPHYLAXIS AGAINST GRAFT VERSUS HOST DISEASE
     Dosage: 1.5 MG, QD
     Route: 065
     Dates: start: 20100522, end: 20100525
  22. TACROLIMUS [Concomitant]
     Indication: PROPHYLAXIS AGAINST GRAFT VERSUS HOST DISEASE
     Dosage: 1.2 MG, QD
     Route: 065
     Dates: start: 20100526, end: 20100526
  23. FILGRASTIM [Concomitant]
     Indication: COLONY STIMULATING FACTOR THERAPY
     Dosage: 350 MCG, QD
     Route: 065
     Dates: start: 20100524, end: 20100524
  24. FILGRASTIM [Concomitant]
     Dosage: 150 MCG, QD
     Dates: start: 20100524, end: 20100524
  25. FOSCARNET SODIUM [Concomitant]
     Indication: ANTIVIRAL PROPHYLAXIS
     Dosage: 3 G, QD
     Route: 065
     Dates: start: 20100525, end: 20100528
  26. MORPHINE HYDROCHLORIDE [Concomitant]
     Indication: RESPIRATORY DISTRESS
     Dosage: 34 MG, QD
     Route: 065
     Dates: start: 20100528, end: 20100528
  27. MIDAZOLAM [Concomitant]
     Indication: RESPIRATORY DISTRESS
     Dosage: 40 MG, QD
     Route: 065
     Dates: start: 20100528, end: 20100528
  28. DIAZEPAM [Concomitant]
     Indication: RESPIRATORY DISTRESS
     Dosage: 20 MG, QD
     Route: 065
     Dates: start: 20100528, end: 20100528

REACTIONS (6)
  - Acute myeloid leukaemia [Fatal]
  - Respiratory failure [Fatal]
  - Pyrexia [Recovered/Resolved]
  - Pulmonary haemorrhage [Fatal]
  - Disseminated intravascular coagulation [Fatal]
  - Cardiac failure [Fatal]
